FAERS Safety Report 9147375 (Version 2)
Quarter: 2013Q2

REPORT INFORMATION
  Report Type: Report from Study
  Country: JP (occurrence: JP)
  Receive Date: 20130307
  Receipt Date: 20130422
  Transmission Date: 20140414
  Serious: Yes (Death)
  Sender: FDA-Public Use
  Company Number: JP-GLAXOSMITHKLINE-B0683239A

PATIENT
  Age: 73 Year
  Sex: Male
  Weight: 60 kg

DRUGS (14)
  1. TYKERB [Suspect]
     Indication: BREAST CANCER
     Route: 048
     Dates: start: 20100924, end: 20101004
  2. XELODA [Suspect]
     Indication: PRODUCT USED FOR UNKNOWN INDICATION
     Route: 048
     Dates: start: 20100812, end: 20100826
  3. XELODA [Suspect]
     Indication: PRODUCT USED FOR UNKNOWN INDICATION
     Route: 048
     Dates: start: 20100902, end: 20100916
  4. XELODA [Suspect]
     Indication: PRODUCT USED FOR UNKNOWN INDICATION
     Route: 048
     Dates: start: 20100924, end: 20101004
  5. MAGMITT [Suspect]
     Indication: CONSTIPATION
     Route: 048
     Dates: start: 20100924, end: 20101004
  6. AMARYL [Concomitant]
     Indication: DIABETES MELLITUS
     Route: 048
     Dates: start: 20100924, end: 20101004
  7. VOGLIBOSE [Concomitant]
     Indication: DIABETES MELLITUS
     Route: 048
     Dates: start: 20100924, end: 20101004
  8. RINDERON [Concomitant]
     Indication: GASTRITIS
     Route: 048
     Dates: start: 20100924, end: 20101004
  9. LANSOPRAZOLE [Concomitant]
     Indication: GASTROOESOPHAGEAL REFLUX DISEASE
     Route: 048
     Dates: start: 20100924, end: 20101004
  10. MUCOSTA [Concomitant]
     Indication: GASTRITIS
     Route: 048
     Dates: start: 20100924, end: 20101004
  11. BEZATOL SR [Concomitant]
     Indication: HYPERLIPIDAEMIA
     Route: 048
     Dates: start: 20100924, end: 20101004
  12. FUROSEMIDE [Concomitant]
     Indication: OEDEMA
     Route: 048
     Dates: start: 20100924, end: 20101004
  13. CALONAL [Concomitant]
     Indication: PLEURAL EFFUSION
     Route: 048
     Dates: start: 20100924, end: 20101004
  14. PYDOXAL [Concomitant]
     Indication: PROPHYLAXIS
     Route: 048
     Dates: start: 20100812, end: 20101004

REACTIONS (3)
  - Sepsis [Fatal]
  - Pneumonia [Fatal]
  - Diarrhoea [Recovered/Resolved]
